FAERS Safety Report 4930255-6 (Version None)
Quarter: 2006Q1

REPORT INFORMATION
  Report Type: 
  Country: None (occurrence: None)
  Receive Date: 20060228
  Receipt Date: 20060216
  Transmission Date: 20060701
  Serious: Yes (Hospitalization)
  Sender: FDA-Public Use
  Company Number: 390002M06FRA

PATIENT
  Age: 34 Year
  Sex: Female

DRUGS (3)
  1. CETROTIDE (CETRORELIX ACETATE FOR INJECTION) (CETRORELIX ACETATE) [Suspect]
     Indication: IN VITRO FERTILISATION
     Dosage: ONCE, SUBCUTANEOUS
     Route: 058
     Dates: start: 20060111
  2. GONAL-F [Concomitant]
  3. CLOMEPHENE CITRATE (CLOMIFENE CITRATE) [Concomitant]

REACTIONS (8)
  - ABDOMINAL PAIN [None]
  - ALLERGY TEST POSITIVE [None]
  - CHEST DISCOMFORT [None]
  - DRY THROAT [None]
  - DYSPNOEA [None]
  - HYPERHIDROSIS [None]
  - NAUSEA [None]
  - VERTIGO [None]
